FAERS Safety Report 4831894-3 (Version None)
Quarter: 2005Q4

REPORT INFORMATION
  Report Type: 
  Country: None (occurrence: None)
  Receive Date: 20051116
  Receipt Date: 20051103
  Transmission Date: 20060501
  Serious: Yes (Other)
  Sender: FDA-Public Use
  Company Number: 2005RR-01065

PATIENT
  Age: 59 Year
  Sex: Male

DRUGS (18)
  1. FLUOXETINE [Suspect]
     Dosage: 20 MG, QD, ORAL
     Route: 048
     Dates: start: 20050925, end: 20051017
  2. SERETIDE [Concomitant]
  3. LANSOPRAZOLE [Concomitant]
  4. IPRATROPIUM BROMIDE [Concomitant]
  5. ATORVASTATIN CALCIUM [Concomitant]
  6. ATENOLOL [Concomitant]
  7. HEPARIN [Concomitant]
  8. RAMIPRIL [Concomitant]
  9. SANDO-K TABLET [Concomitant]
  10. PARACETAMOL (PARACETAMOL) [Concomitant]
  11. TOLTERODINE [Concomitant]
  12. SENNA [Concomitant]
  13. QUININE SULPHATE TABLET (QUININE SULFATE) [Concomitant]
  14. DIHYDROCODEINE (DIHYDROCODEINE) [Concomitant]
  15. CLOPIDOGREL BISULFATE [Concomitant]
  16. NICORANDIL [Concomitant]
  17. VERAPAMIL [Concomitant]
  18. LACTULOSE [Concomitant]

REACTIONS (2)
  - HYPONATRAEMIA [None]
  - PNEUMONIA [None]
